FAERS Safety Report 5960543-6 (Version None)
Quarter: 2008Q4

REPORT INFORMATION
  Report Type: 
  Country: None (occurrence: None)
  Receive Date: 20081120
  Receipt Date: 20080606
  Transmission Date: 20090506
  Serious: No
  Sender: FDA-Public Use
  Company Number: US-ABBOTT-08P-163-0456290-00

PATIENT
  Sex: Female
  Weight: 89.892 kg

DRUGS (8)
  1. BIAXIN [Suspect]
     Indication: PSORIATIC ARTHROPATHY
     Dates: start: 20080301, end: 20080301
  2. ATENOLOL [Concomitant]
     Indication: HYPERTENSION
     Route: 048
  3. FOLIC ACID [Concomitant]
     Indication: VITAMIN SUPPLEMENTATION
     Route: 048
  4. SINGULAIR [Concomitant]
     Indication: ASTHMA
     Route: 048
  5. ZINC [Concomitant]
     Indication: MINERAL SUPPLEMENTATION
     Route: 048
  6. DYAZIDE [Concomitant]
     Indication: HYPERTENSION
     Route: 048
  7. PROPOXYPENE [Concomitant]
     Indication: PAIN
     Route: 048
  8. GLUCOSAMINE CHONDROITIN [Concomitant]
     Indication: MEDICAL DIET
     Route: 048

REACTIONS (4)
  - CONVULSION [None]
  - GENERALISED ERYTHEMA [None]
  - UNEVALUABLE EVENT [None]
  - VOMITING [None]
